FAERS Safety Report 23110149 (Version 1)
Quarter: 2023Q4

REPORT INFORMATION
  Report Type: Spontaneous
  Country: US (occurrence: None)
  Receive Date: 20231024
  Receipt Date: 20231024
  Transmission Date: 20240110
  Serious: Yes (Hospitalization)
  Sender: FDA-Public Use
  Company Number: None

PATIENT
  Age: 84 Year
  Sex: Female
  Weight: 73.4 kg

DRUGS (1)
  1. LOVASTATIN [Suspect]
     Active Substance: LOVASTATIN
     Dates: start: 20210917, end: 20211005

REACTIONS (2)
  - Abdominal pain [None]
  - Myalgia [None]

NARRATIVE: CASE EVENT DATE: 20211005
